FAERS Safety Report 8653341 (Version 4)
Quarter: 2012Q4

REPORT INFORMATION
  Report Type: 
  Country: US (occurrence: US)
  Receive Date: 20120706
  Receipt Date: 20120926
  Transmission Date: 20130627
  Serious: Yes (Life-Threatening, Hospitalization)
  Sender: FDA-Public Use
  Company Number: US-ASTRAZENECA-2012SE45110

PATIENT
  Age: 53 Year
  Sex: Female
  Weight: 56.7 kg

DRUGS (13)
  1. SYMBICORT [Suspect]
     Indication: ASTHMA
     Dosage: 320MCG TWO TIMES A DAY
     Route: 055
     Dates: start: 2011
  2. SYMBICORT [Suspect]
     Indication: ASTHMA
     Dosage: 160/4.5 MCG TWO PUFFS TWO TIMES A DAY
     Route: 055
  3. TRAMADOL [Concomitant]
  4. BACLOFEN [Concomitant]
  5. NEURONTIN [Concomitant]
  6. CELEBREX [Concomitant]
  7. TYLENOL [Concomitant]
  8. DUONEB [Concomitant]
     Indication: ASTHMA
  9. ZOLOFT [Concomitant]
  10. PREDNISONE [Concomitant]
  11. AMLODIOPINE [Concomitant]
     Indication: HYPERTENSION
  12. DALIRESP [Concomitant]
     Indication: ASTHMA
  13. VENTOLIN [Concomitant]

REACTIONS (8)
  - Respiratory arrest [Unknown]
  - Respiratory distress [Unknown]
  - Cardiac disorder [Unknown]
  - Coronary artery disease [Unknown]
  - Blood potassium decreased [Unknown]
  - Dyspnoea [Unknown]
  - Dysgeusia [Recovered/Resolved]
  - Drug dose omission [Recovered/Resolved]
